FAERS Safety Report 9735325 (Version 1)
Quarter: 2013Q4

REPORT INFORMATION
  Report Type: Spontaneous
  Country: FR (occurrence: FR)
  Receive Date: 20131206
  Receipt Date: 20131206
  Transmission Date: 20140711
  Serious: Yes (Disabling)
  Sender: FDA-Public Use
  Company Number: FR-SA-2013SA124059

PATIENT
  Age: 44 Year
  Sex: Male

DRUGS (2)
  1. LASILIX [Suspect]
     Indication: PRODUCT USED FOR UNKNOWN INDICATION
     Route: 048
     Dates: end: 20130217
  2. GENTAMICIN [Suspect]
     Indication: INFECTION
     Route: 033
     Dates: start: 20130203, end: 20130213

REACTIONS (4)
  - Dizziness [Recovered/Resolved with Sequelae]
  - Vestibular disorder [Recovered/Resolved with Sequelae]
  - Balance disorder [Recovered/Resolved with Sequelae]
  - Vomiting [Recovered/Resolved]
